FAERS Safety Report 8070668-X (Version None)
Quarter: 2012Q1

REPORT INFORMATION
  Report Type: 
  Country: None (occurrence: None)
  Receive Date: 20120125
  Receipt Date: 20120119
  Transmission Date: 20120608
  Serious: Yes (Other)
  Sender: FDA-Public Use
  Company Number: PHEH2012US000784

PATIENT
  Age: 46 Year
  Sex: Male
  Weight: 66.7 kg

DRUGS (3)
  1. CRESTOR [Concomitant]
     Indication: HYPERCHOLESTEROLAEMIA
     Dosage: 10 MG, QD
     Dates: start: 20071115
  2. GILENYA [Suspect]
     Indication: RELAPSING-REMITTING MULTIPLE SCLEROSIS
     Dosage: 0.5 MG, QD
     Dates: start: 20110216
  3. PRAVACHOL [Concomitant]
     Indication: HYPERCHOLESTEROLAEMIA

REACTIONS (6)
  - MEAN CELL VOLUME INCREASED [None]
  - LEUKOCYTOSIS [None]
  - LYMPHOCYTOSIS [None]
  - MEAN CELL HAEMOGLOBIN INCREASED [None]
  - MELANOCYTIC NAEVUS [None]
  - ORAL HERPES [None]
